FAERS Safety Report 8582666 (Version 2)
Quarter: 2013Q1

REPORT INFORMATION
  Report Type: Spontaneous
  Country: FR (occurrence: FR)
  Receive Date: 20120529
  Receipt Date: 20130116
  Transmission Date: 20140127
  Serious: Yes (Hospitalization, Other)
  Sender: FDA-Public Use
  Company Number: FR-PFIZER INC-2012126939

PATIENT
  Age: 89 Year
  Sex: Female

DRUGS (7)
  1. CORDARONE [Suspect]
     Indication: ATRIAL FLUTTER
     Dosage: 200 MG, UNKNOWN
     Route: 048
  2. PRADAXA [Interacting]
     Indication: ATRIAL FIBRILLATION
     Dosage: 1 DF, 2X/DAY
     Route: 048
     Dates: start: 201202, end: 20120414
  3. ATENOLOL [Concomitant]
     Dosage: 50 NOS/DAY
  4. LASILIX [Concomitant]
     Dosage: 20 NOS/DAY
  5. LIPANTHYL [Concomitant]
     Dosage: 145 NOS/DAY
  6. LERCAN [Concomitant]
     Dosage: 10 NOS/DAY
  7. DIFFU K [Concomitant]
     Dosage: 1 DF/DAY

REACTIONS (5)
  - Drug interaction [Unknown]
  - Rectal haemorrhage [Recovered/Resolved]
  - Melaena [Unknown]
  - Renal failure [Unknown]
  - Haemorrhagic anaemia [Recovered/Resolved]
